FAERS Safety Report 23635586 (Version 2)
Quarter: 2024Q1

REPORT INFORMATION
  Report Type: Report from Study
  Country: US (occurrence: US)
  Receive Date: 20240315
  Receipt Date: 20240321
  Transmission Date: 20240410
  Serious: Yes (Other)
  Sender: FDA-Public Use
  Company Number: US-ABBVIE-5679314

PATIENT
  Age: 58 Year
  Sex: Male

DRUGS (1)
  1. RINVOQ [Suspect]
     Active Substance: UPADACITINIB
     Indication: Dermatitis atopic
     Dosage: STOP DATE: 2024
     Route: 048
     Dates: start: 2023

REACTIONS (6)
  - Arthropathy [Recovering/Resolving]
  - Rash [Not Recovered/Not Resolved]
  - Influenza [Recovered/Resolved]
  - Influenza [Recovered/Resolved]
  - COVID-19 [Unknown]
  - Product after taste [Unknown]

NARRATIVE: CASE EVENT DATE: 20230101
